FAERS Safety Report 4367705-2 (Version None)
Quarter: 2004Q2

REPORT INFORMATION
  Report Type: 
  Country: None (occurrence: None)
  Receive Date: 20040526
  Receipt Date: 20040324
  Transmission Date: 20050107
  Serious: Yes (Hospitalization, Other)
  Sender: FDA-Public Use
  Company Number: USA030538179

PATIENT
  Age: 45 Year
  Sex: Female

DRUGS (1)
  1. ZYPREXA [Suspect]
     Indication: BIPOLAR DISORDER
     Dosage: 10 MG/2 DAY
     Dates: start: 20030401

REACTIONS (25)
  - AXILLARY PAIN [None]
  - BLINDNESS [None]
  - BREAST ENGORGEMENT [None]
  - BREAST SWELLING [None]
  - BREAST TENDERNESS [None]
  - CONFUSIONAL STATE [None]
  - DEHYDRATION [None]
  - DIZZINESS [None]
  - DRY THROAT [None]
  - DYSSTASIA [None]
  - FEELING ABNORMAL [None]
  - GAIT DISTURBANCE [None]
  - GROIN PAIN [None]
  - HANGOVER [None]
  - HYPERSOMNIA [None]
  - HYPERTROPHY BREAST [None]
  - INCREASED APPETITE [None]
  - INJURY [None]
  - LOCAL SWELLING [None]
  - LOSS OF CONSCIOUSNESS [None]
  - MUSCULOSKELETAL STIFFNESS [None]
  - NIGHTMARE [None]
  - SOMNOLENCE [None]
  - VAGINAL DISCHARGE [None]
  - VOMITING [None]
